FAERS Safety Report 21700252 (Version 1)
Quarter: 2022Q4

REPORT INFORMATION
  Report Type: Report from Study
  Country: US (occurrence: US)
  Receive Date: 20221208
  Receipt Date: 20221208
  Transmission Date: 20230112
  Serious: Yes (Hospitalization, Other)
  Sender: FDA-Public Use
  Company Number: US-BAYER-2022A147237

PATIENT
  Age: 54 Year
  Sex: Male

DRUGS (2)
  1. STIVARGA [Suspect]
     Active Substance: REGORAFENIB
     Indication: Colorectal cancer
     Dosage: 160 MG, QD FOR 21 DAYS ON THEN 7 DAYS OFF FOR 28 DAY CYCLE
     Dates: start: 20220928
  2. DILAUDID [Concomitant]
     Active Substance: HYDROMORPHONE HYDROCHLORIDE
     Dosage: UNK

REACTIONS (9)
  - Colorectal cancer [Not Recovered/Not Resolved]
  - Coccydynia [Not Recovered/Not Resolved]
  - Sciatica [Not Recovered/Not Resolved]
  - Pain [Not Recovered/Not Resolved]
  - Bladder dilatation [Not Recovered/Not Resolved]
  - Neuropathy peripheral [Not Recovered/Not Resolved]
  - Device related infection [None]
  - Blister [Not Recovered/Not Resolved]
  - Rash [Not Recovered/Not Resolved]
